FAERS Safety Report 5560230-2 (Version None)
Quarter: 2007Q4

REPORT INFORMATION
  Report Type: 
  Country: None (occurrence: None)
  Receive Date: 20071214
  Receipt Date: 20071030
  Transmission Date: 20080405
  Serious: No
  Sender: FDA-Public Use
  Company Number: US-ABBOTT-07P-163-0422959-00

PATIENT
  Sex: Male
  Weight: 113.6 kg

DRUGS (11)
  1. HUMIRA [Suspect]
     Indication: PSORIATIC ARTHROPATHY
     Route: 058
     Dates: start: 20070401
  2. HUMIRA [Suspect]
     Indication: PSORIASIS
  3. METHOTREXATE [Concomitant]
     Indication: PSORIATIC ARTHROPATHY
     Route: 048
  4. METHOTREXATE [Concomitant]
     Indication: PSORIASIS
  5. PREDNISONE [Concomitant]
     Indication: PSORIATIC ARTHROPATHY
     Route: 048
  6. NAPROXEN [Concomitant]
     Indication: PAIN
     Route: 048
  7. LORTAB [Concomitant]
     Indication: PAIN
     Route: 048
  8. TRAMADOL HCL [Concomitant]
     Indication: PAIN
     Dosage: 50MG-ONE OR TWO THREE TIMES A DAY AS NEEDED
     Route: 048
  9. RANITIDINE HYDROCHLORIDE [Concomitant]
     Indication: GASTROOESOPHAGEAL REFLUX DISEASE
     Route: 048
  10. MULTI-VITAMIN [Concomitant]
     Indication: VITAMIN SUPPLEMENTATION
     Route: 048
  11. LIDODERM [Concomitant]
     Indication: PAIN
     Dosage: ROUTE: PATCH, CHANGE DAILY

REACTIONS (1)
  - ACCIDENTAL EXPOSURE [None]
